FAERS Safety Report 18315165 (Version 1)
Quarter: 2020Q3

REPORT INFORMATION
  Report Type: Spontaneous
  Country: US (occurrence: US)
  Receive Date: 20200925
  Receipt Date: 20200925
  Transmission Date: 20201103
  Serious: No
  Sender: FDA-Public Use
  Company Number: US-VERASTEM-2020-00082

PATIENT

DRUGS (1)
  1. COPIKTRA [Suspect]
     Active Substance: DUVELISIB
     Indication: PERIPHERAL T-CELL LYMPHOMA UNSPECIFIED
     Dosage: 25 MG, BID
     Route: 048
     Dates: start: 20200430, end: 20200702

REACTIONS (9)
  - Hypoaesthesia [Unknown]
  - Taste disorder [Not Recovered/Not Resolved]
  - Dyspnoea [Unknown]
  - Product dose omission issue [Unknown]
  - Asthenia [Unknown]
  - Diarrhoea [Recovered/Resolved]
  - Product use in unapproved indication [Not Recovered/Not Resolved]
  - Weight decreased [Unknown]
  - Decreased appetite [Unknown]

NARRATIVE: CASE EVENT DATE: 2020
